FAERS Safety Report 9190859 (Version 2)
Quarter: 2015Q3

REPORT INFORMATION
  Report Type: Report from Study
  Country: JP (occurrence: JP)
  Receive Date: 20130326
  Receipt Date: 20150923
  Transmission Date: 20151125
  Serious: Yes (Life-Threatening, Disabling, Other)
  Sender: FDA-Public Use
  Company Number: JP-GLAXOSMITHKLINE-B0643556A

PATIENT
  Age: 16 Year
  Sex: Male
  Weight: 55 kg

DRUGS (29)
  1. ENDOXAN [Concomitant]
     Active Substance: CYCLOPHOSPHAMIDE
     Indication: NEOPLASM MALIGNANT
     Route: 051
     Dates: start: 20090330, end: 20090403
  2. KYTRIL [Concomitant]
     Active Substance: GRANISETRON HYDROCHLORIDE
     Route: 042
     Dates: start: 20090331, end: 20090404
  3. NELARABINE [Suspect]
     Active Substance: NELARABINE
     Indication: T-CELL TYPE ACUTE LEUKAEMIA
     Route: 041
     Dates: start: 20090331, end: 20090331
  4. FRAGMIN [Concomitant]
     Active Substance: DALTEPARIN SODIUM
     Route: 051
     Dates: start: 20090619, end: 20090628
  5. ONCOVIN [Concomitant]
     Active Substance: VINCRISTINE SULFATE
     Indication: NEOPLASM MALIGNANT
     Route: 051
     Dates: start: 20090217, end: 20090303
  6. DAUNOMYCIN [Concomitant]
     Active Substance: DAUNORUBICIN
     Indication: NEOPLASM MALIGNANT
     Route: 051
     Dates: start: 20090220, end: 20090222
  7. LEUNASE [Concomitant]
     Active Substance: ASPARAGINASE
     Indication: NEOPLASM MALIGNANT
     Route: 051
     Dates: start: 20090224, end: 20090301
  8. ZYLORIC [Concomitant]
     Active Substance: ALLOPURINOL
     Route: 048
     Dates: start: 20090309, end: 20090617
  9. NEUTROGIN [Concomitant]
     Active Substance: LENOGRASTIM
     Route: 051
     Dates: start: 20090521, end: 20090525
  10. ATARAXP [Concomitant]
     Active Substance: HYDROXYZINE HYDROCHLORIDE
     Route: 051
     Dates: start: 20090331, end: 20090414
  11. NELARABINE [Suspect]
     Active Substance: NELARABINE
     Indication: T-CELL TYPE ACUTE LEUKAEMIA
     Route: 041
     Dates: start: 20090309, end: 20090309
  12. ENDOXAN [Concomitant]
     Active Substance: CYCLOPHOSPHAMIDE
     Indication: NEOPLASM MALIGNANT
     Route: 051
     Dates: start: 20090219, end: 20090219
  13. VEPESID [Concomitant]
     Active Substance: ETOPOSIDE
     Indication: NEOPLASM MALIGNANT
     Route: 051
     Dates: start: 20090330, end: 20090403
  14. CEFAMEZIN [Concomitant]
     Active Substance: CEFAZOLIN
     Route: 051
     Dates: start: 20090309, end: 20090313
  15. FENTANYL. [Concomitant]
     Active Substance: FENTANYL
     Route: 051
     Dates: start: 20090309, end: 20090313
  16. KYTRIL [Concomitant]
     Active Substance: GRANISETRON HYDROCHLORIDE
     Route: 042
     Dates: start: 20090619, end: 20090623
  17. NEUTROGIN [Concomitant]
     Active Substance: LENOGRASTIM
     Route: 051
     Dates: start: 20090406, end: 20090420
  18. NELARABINE [Suspect]
     Active Substance: NELARABINE
     Indication: T-CELL TYPE ACUTE LEUKAEMIA
     Route: 041
     Dates: start: 20090508, end: 20090508
  19. NELARABINE [Suspect]
     Active Substance: NELARABINE
     Indication: T-CELL TYPE ACUTE LEUKAEMIA
     Route: 041
     Dates: start: 20090619, end: 20090619
  20. KYTRIL [Concomitant]
     Active Substance: GRANISETRON HYDROCHLORIDE
     Route: 042
     Dates: start: 20090309, end: 20090313
  21. PROGRAF [Suspect]
     Active Substance: TACROLIMUS\TACROLIMUS ANHYDROUS
     Route: 051
     Dates: start: 20090628, end: 20090711
  22. ENDOXAN [Concomitant]
     Active Substance: CYCLOPHOSPHAMIDE
     Indication: NEOPLASM MALIGNANT
     Route: 051
     Dates: start: 20090430, end: 20090504
  23. ZOSYN [Concomitant]
     Active Substance: PIPERACILLIN SODIUM\TAZOBACTAM SODIUM
     Route: 051
     Dates: start: 20090415, end: 20090418
  24. PANTOL [Concomitant]
     Active Substance: DEXPANTHENOL
     Route: 051
     Dates: start: 20090417, end: 20090420
  25. ATARAXP [Concomitant]
     Active Substance: HYDROXYZINE HYDROCHLORIDE
     Route: 051
     Dates: start: 20090512, end: 20090518
  26. VEPESID [Concomitant]
     Active Substance: ETOPOSIDE
     Indication: NEOPLASM MALIGNANT
     Route: 051
     Dates: start: 20090430, end: 20090504
  27. BAKTAR [Concomitant]
     Active Substance: SULFAMETHOXAZOLE\TRIMETHOPRIM
     Route: 048
     Dates: start: 20090309, end: 20090617
  28. EVAMYL [Concomitant]
     Active Substance: LORMETAZEPAM
     Route: 048
     Dates: start: 20090309, end: 20090623
  29. KYTRIL [Concomitant]
     Active Substance: GRANISETRON HYDROCHLORIDE
     Route: 042
     Dates: start: 20090508, end: 20090512

REACTIONS (5)
  - Hypoaesthesia [Recovering/Resolving]
  - Renal disorder [Recovered/Resolved]
  - Acute respiratory distress syndrome [Recovered/Resolved]
  - Anal fissure [Recovered/Resolved]
  - Cystitis viral [Recovered/Resolved]

NARRATIVE: CASE EVENT DATE: 20090708
